FAERS Safety Report 7687896-5 (Version None)
Quarter: 2011Q3

REPORT INFORMATION
  Report Type: 
  Country: None (occurrence: None)
  Receive Date: 20110817
  Receipt Date: 20110811
  Transmission Date: 20111222
  Serious: Yes (Death, Hospitalization, Other)
  Sender: FDA-Public Use
  Company Number: US-AMGEN-USASP2011036088

PATIENT
  Age: 82 Year
  Sex: Female
  Weight: 66.213 kg

DRUGS (1)
  1. NPLATE [Suspect]
     Indication: IDIOPATHIC THROMBOCYTOPENIC PURPURA
     Dosage: 140 A?G, QWK
     Route: 058
     Dates: start: 20110428, end: 20110519

REACTIONS (6)
  - NON-HODGKIN'S LYMPHOMA [None]
  - THROMBOCYTOPENIA [None]
  - CHRONIC LYMPHOCYTIC LEUKAEMIA [None]
  - DRUG INEFFECTIVE [None]
  - MYELODYSPLASTIC SYNDROME [None]
  - ANAEMIA [None]
